FAERS Safety Report 21609787 (Version 1)
Quarter: 2022Q4

REPORT INFORMATION
  Report Type: Report from Study
  Country: US (occurrence: US)
  Receive Date: 20221117
  Receipt Date: 20221117
  Transmission Date: 20230113
  Serious: No
  Sender: FDA-Public Use
  Company Number: US-ABBVIE-4170670

PATIENT
  Age: 62 Year
  Sex: Male

DRUGS (1)
  1. HUMIRA [Suspect]
     Active Substance: ADALIMUMAB
     Indication: Rheumatoid arthritis
     Dosage: HUMIRA CF
     Route: 058

REACTIONS (4)
  - Pain in extremity [Unknown]
  - Rash pruritic [Unknown]
  - Erythema [Unknown]
  - Dry mouth [Unknown]

NARRATIVE: CASE EVENT DATE: 20221018
